FAERS Safety Report 17568868 (Version 1)
Quarter: 2020Q1

REPORT INFORMATION
  Report Type: Spontaneous
  Country: GB (occurrence: GB)
  Receive Date: 20200321
  Receipt Date: 20200321
  Transmission Date: 20200409
  Serious: Yes (Other)
  Sender: FDA-Public Use
  Company Number: GB-TEVA-2020-GB-1205254

PATIENT
  Age: 63 Year
  Sex: Female
  Weight: 72 kg

DRUGS (6)
  1. ADCAL [Concomitant]
     Dosage: 2 DOSAGE FORMS
     Dates: start: 20200227
  2. PARACETAMOL [Concomitant]
     Active Substance: ACETAMINOPHEN
     Dosage: 8 DOSAGE FORMS DAILY; FOUR TIMES A DAY
     Dates: start: 20180126
  3. MAROL PROLONGED RELEASE [Concomitant]
     Active Substance: TRAMADOL HYDROCHLORIDE
     Dosage: 1 DOSAGE FORM
     Dates: start: 20191125
  4. LOSARTAN. [Suspect]
     Active Substance: LOSARTAN
     Dosage: INCREASED FROM 25MG TO 50MG
     Route: 065
     Dates: start: 20190313
  5. ATORVASTATIN [Concomitant]
     Active Substance: ATORVASTATIN
     Dosage: 1 DOSAGE FORM
     Dates: start: 20191005
  6. NORTRIPTYLINE [Concomitant]
     Active Substance: NORTRIPTYLINE
     Dosage: 3 DOSAGE FORMS DAILY; NIGHT
     Dates: start: 20190301

REACTIONS (2)
  - Depression [Recovered/Resolved]
  - Suicidal ideation [Unknown]

NARRATIVE: CASE EVENT DATE: 20200227
